FAERS Safety Report 4663922-2 (Version None)
Quarter: 2005Q2

REPORT INFORMATION
  Report Type: 
  Country: None (occurrence: None)
  Receive Date: 20050511
  Receipt Date: 20050203
  Transmission Date: 20051028
  Serious: Yes (Other)
  Sender: FDA-Public Use
  Company Number: 388984

PATIENT
  Sex: Female

DRUGS (4)
  1. PEGASYS [Suspect]
     Indication: HEPATITIS C VIRUS
     Dosage: 180 MCG 1 PER WEEK SUBCUTANEOUS
     Route: 058
     Dates: start: 20041112
  2. COPEGUS [Suspect]
     Indication: HEPATITIS C VIRUS
     Dosage: 5 DOSE FORM DAILY ORAL
     Route: 048
     Dates: start: 20041112
  3. SYNTHROID [Concomitant]
  4. ANTIDEPRESSANT NOS [Concomitant]

REACTIONS (9)
  - COUGH [None]
  - DYSPNOEA [None]
  - EAR LOBE INFECTION [None]
  - FATIGUE [None]
  - LYMPHADENOPATHY [None]
  - MYALGIA [None]
  - RASH [None]
  - RED BLOOD CELL COUNT DECREASED [None]
  - WHITE BLOOD CELL COUNT DECREASED [None]
